FAERS Safety Report 7249425-X (Version None)
Quarter: 2011Q1

REPORT INFORMATION
  Report Type: 
  Country: None (occurrence: None)
  Receive Date: 20110128
  Receipt Date: 20101217
  Transmission Date: 20110831
  Serious: Yes (Hospitalization, Other)
  Sender: FDA-Public Use
  Company Number: US-BAYER-200942548NA

PATIENT
  Sex: Female
  Weight: 56.364 kg

DRUGS (3)
  1. YAZ [Suspect]
     Route: 048
     Dates: start: 20080101, end: 20090101
  2. YASMIN [Suspect]
     Indication: CONTRACEPTION
     Route: 048
  3. YAZ [Suspect]
     Indication: CONTRACEPTION
     Route: 048
     Dates: start: 20070101

REACTIONS (2)
  - HEPATITIS [None]
  - DEEP VEIN THROMBOSIS [None]
